FAERS Safety Report 20697361 (Version 1)
Quarter: 2022Q2

REPORT INFORMATION
  Report Type: Spontaneous
  Country: US (occurrence: None)
  Receive Date: 20220408
  Receipt Date: 20220408
  Transmission Date: 20220721
  Serious: No
  Sender: FDA-Public Use
  Company Number: None

PATIENT
  Age: 64 Year
  Sex: Female

DRUGS (1)
  1. HUMIRA [Suspect]
     Active Substance: ADALIMUMAB
     Route: 058
     Dates: start: 202102

REACTIONS (5)
  - Pain in extremity [None]
  - Arthralgia [None]
  - Impaired quality of life [None]
  - Injection site bruising [None]
  - COVID-19 [None]

NARRATIVE: CASE EVENT DATE: 20220101
